FAERS Safety Report 21972448 (Version 1)
Quarter: 2023Q1

REPORT INFORMATION
  Report Type: Spontaneous
  Country: US (occurrence: None)
  Receive Date: 20230207
  Receipt Date: 20230207
  Transmission Date: 20230417
  Serious: No
  Sender: FDA-Public Use
  Company Number: None

PATIENT
  Age: 45 Year
  Sex: Female

DRUGS (1)
  1. MYCOPHENOLATE MOFETIL [Suspect]
     Active Substance: MYCOPHENOLATE MOFETIL
     Dosage: 1500MG BID ORAL
     Route: 048
     Dates: start: 201804

REACTIONS (3)
  - Fatigue [None]
  - Arthralgia [None]
  - Visual impairment [None]

NARRATIVE: CASE EVENT DATE: 20230207
